FAERS Safety Report 11224327 (Version 3)
Quarter: 2015Q4

REPORT INFORMATION
  Report Type: Spontaneous
  Country: US (occurrence: US)
  Receive Date: 20150629
  Receipt Date: 20151110
  Transmission Date: 20160304
  Serious: Yes (Hospitalization)
  Sender: FDA-Public Use
  Company Number: US-BAYER-2015-362250

PATIENT
  Age: 42 Year
  Sex: Female
  Weight: 62.59 kg

DRUGS (7)
  1. PLAN B [Concomitant]
     Active Substance: LEVONORGESTREL
  2. MOBIC [Concomitant]
     Active Substance: MELOXICAM
  3. NORCO [Concomitant]
     Active Substance: ACETAMINOPHEN\HYDROCODONE BITARTRATE
  4. ALEVE [Concomitant]
     Active Substance: NAPROXEN SODIUM
  5. MIRENA [Suspect]
     Active Substance: LEVONORGESTREL
     Indication: CONTRACEPTION
     Dosage: 20 MCG/24HR, CONT
     Route: 015
     Dates: start: 2004, end: 20090205
  6. MIRENA [Suspect]
     Active Substance: LEVONORGESTREL
     Indication: CONTRACEPTION
     Dosage: 20 MCG/24HR, CONT
     Route: 015
     Dates: start: 20090205, end: 20130205
  7. MOTRIN [Concomitant]
     Active Substance: IBUPROFEN

REACTIONS (12)
  - Inflammatory pain [None]
  - Depression [Not Recovered/Not Resolved]
  - Device difficult to use [None]
  - Groin pain [None]
  - Injury [None]
  - Emotional distress [None]
  - Activities of daily living impaired [None]
  - Bladder pain [Recovered/Resolved]
  - Embedded device [None]
  - Pelvic floor dyssynergia [None]
  - Pelvic pain [None]
  - Anxiety [Not Recovered/Not Resolved]

NARRATIVE: CASE EVENT DATE: 2012
